FAERS Safety Report 24366266 (Version 2)
Quarter: 2024Q4

REPORT INFORMATION
  Report Type: Spontaneous
  Country: US (occurrence: US)
  Receive Date: 20240926
  Receipt Date: 20241024
  Transmission Date: 20250114
  Serious: No
  Sender: BLUEPRINT MEDICINES
  Company Number: US-Blueprint Medicines Corporation-4857

PATIENT
  Sex: Female

DRUGS (2)
  1. AYVAKIT [Suspect]
     Active Substance: AVAPRITINIB
     Indication: Systemic mastocytosis
     Route: 065
     Dates: start: 20240610
  2. AYVAKIT [Suspect]
     Active Substance: AVAPRITINIB
     Route: 065
     Dates: start: 20240610

REACTIONS (6)
  - Hair colour changes [Unknown]
  - Dysphonia [Unknown]
  - Fatigue [Recovering/Resolving]
  - Lethargy [Unknown]
  - Blood potassium decreased [Unknown]
  - Blood creatinine increased [Unknown]
